FAERS Safety Report 6462465-3 (Version None)
Quarter: 2009Q4

REPORT INFORMATION
  Report Type: 
  Country: None (occurrence: None)
  Receive Date: 20091130
  Receipt Date: 20091117
  Transmission Date: 20100525
  Serious: Yes (Hospitalization)
  Sender: FDA-Public Use
  Company Number: FR-ELI_LILLY_AND_COMPANY-FR200911004331

PATIENT
  Age: 59 Year
  Sex: Female

DRUGS (3)
  1. FORTEO [Suspect]
     Indication: OSTEOPOROSIS
     Dosage: 20 UG, DAILY (1/D)
     Route: 065
     Dates: start: 20090921
  2. NULYTELY [Concomitant]
     Dosage: UNK, UNKNOWN
  3. FORLAX [Concomitant]
     Dosage: UNK, UNKNOWN

REACTIONS (1)
  - INGUINAL HERNIA [None]
